FAERS Safety Report 8513390-5 (Version None)
Quarter: 2012Q3

REPORT INFORMATION
  Report Type: 
  Country: None (occurrence: None)
  Receive Date: 20120717
  Receipt Date: 20120703
  Transmission Date: 20120928
  Serious: Yes (Hospitalization)
  Sender: FDA-Public Use
  Company Number: FR-BRISTOL-MYERS SQUIBB COMPANY-16742397

PATIENT
  Age: 77 Year
  Sex: Female

DRUGS (6)
  1. LORAZEPAM [Suspect]
     Indication: DEPRESSION
     Dosage: TAB
     Route: 048
  2. LORAZEPAM [Suspect]
     Indication: ANXIETY
     Dosage: TAB
     Route: 048
  3. FEMARA [Suspect]
     Indication: BREAST CANCER METASTATIC
     Route: 048
     Dates: start: 20120607
  4. STABLON [Suspect]
     Indication: DEPRESSION
     Dosage: COATED TABLET
     Route: 048
     Dates: start: 20120607, end: 20120608
  5. SECTRAL [Concomitant]
     Route: 048
  6. TAXOL [Suspect]
     Indication: BREAST CANCER METASTATIC
     Dosage: RESTART ON 14JUN12
     Route: 042
     Dates: start: 20120607

REACTIONS (2)
  - IRRITABILITY [None]
  - AFFECTIVE DISORDER [None]
